FAERS Safety Report 6518026-0 (Version None)
Quarter: 2009Q4

REPORT INFORMATION
  Report Type: 
  Country: None (occurrence: None)
  Receive Date: 20091224
  Receipt Date: 20091214
  Transmission Date: 20100525
  Serious: Yes (Death, Hospitalization)
  Sender: FDA-Public Use
  Company Number: TH-ROCHE-645064

PATIENT
  Sex: Female
  Weight: 20.2 kg

DRUGS (10)
  1. SAQUINAVIR [Suspect]
     Indication: HIV INFECTION
     Route: 048
     Dates: start: 20050330, end: 20051102
  2. LOPINAVIR AND RITONAVIR [Suspect]
     Indication: HIV INFECTION
     Dosage: DOSE 230/57.5 MG/M2; STRENGTH: 133/33 MG ADULT CAPSULES
     Route: 065
     Dates: start: 20050330, end: 20051102
  3. 3TC [Suspect]
     Dosage: DOSAGE FORM REPORTED AS CAPSULE/LIQUID.
     Route: 048
     Dates: start: 20050330, end: 20051102
  4. ISONIAZID [Concomitant]
     Dates: start: 20051102
  5. RIFAMPICIN [Concomitant]
     Dates: start: 20051102
  6. PIRAZINAMIDE [Concomitant]
     Dates: start: 20051102
  7. STREPTOMYCIN [Concomitant]
     Dates: start: 20051102
  8. ACICLOVIR [Concomitant]
     Dates: start: 20051207
  9. FLUCONAZOLE [Concomitant]
     Dosage: TOTAL DAILY DOSE REPORTED AS 100 M,W,F.
     Dates: start: 20051207
  10. CO-TRIMOXAZOLE [Concomitant]
     Dosage: TOTAL DAILY DOSE REPORTED AS 200/40
     Dates: start: 20050524

REACTIONS (4)
  - DIARRHOEA INFECTIOUS [None]
  - GASTROENTERITIS [None]
  - PULMONARY TUBERCULOSIS [None]
  - SEPSIS [None]
